FAERS Safety Report 9636064 (Version 1)
Quarter: 2013Q4

REPORT INFORMATION
  Report Type: Spontaneous
  Country: AU (occurrence: AU)
  Receive Date: 20131021
  Receipt Date: 20131021
  Transmission Date: 20140711
  Serious: Yes (Hospitalization, Other)
  Sender: FDA-Public Use
  Company Number: AU-MYLANLABS-2013S1022975

PATIENT
  Age: 66 Year
  Sex: Male

DRUGS (8)
  1. METFORMIN [Suspect]
     Indication: PRODUCT USED FOR UNKNOWN INDICATION
  2. OXYCONTIN [Concomitant]
  3. SENNA [Concomitant]
  4. LIPITOR [Concomitant]
  5. TEMAZEPAM [Concomitant]
  6. PACLITAXEL [Concomitant]
  7. CARBOPLATIN [Concomitant]
  8. PARACETAMOL [Concomitant]

REACTIONS (5)
  - Anaemia [Unknown]
  - Constipation [Unknown]
  - Arthralgia [Unknown]
  - Febrile neutropenia [Unknown]
  - Calcinosis [Unknown]
